APPROVED DRUG PRODUCT: FROVATRIPTAN SUCCINATE
Active Ingredient: FROVATRIPTAN SUCCINATE
Strength: EQ 2.5MG BASE
Dosage Form/Route: TABLET;ORAL
Application: A213891 | Product #001 | TE Code: AB
Applicant: RENATA PLC
Approved: Apr 6, 2022 | RLD: No | RS: No | Type: RX